FAERS Safety Report 7122639-5 (Version None)
Quarter: 2010Q4

REPORT INFORMATION
  Report Type: 
  Country: None (occurrence: None)
  Receive Date: 20101124
  Receipt Date: 20101118
  Transmission Date: 20110411
  Serious: Yes (Hospitalization)
  Sender: FDA-Public Use
  Company Number: US-ALEXION-A201001444

PATIENT

DRUGS (2)
  1. SOLIRIS [Suspect]
     Indication: PAROXYSMAL NOCTURNAL HAEMOGLOBINURIA
     Dosage: 900 MG, Q2W
     Route: 042
  2. EXJADE [Concomitant]
     Dosage: UNK

REACTIONS (6)
  - ABDOMINAL PAIN [None]
  - ABSCESS [None]
  - ASTHENIA [None]
  - FATIGUE [None]
  - PALLOR [None]
  - WEIGHT DECREASED [None]
